FAERS Safety Report 13794976 (Version 1)
Quarter: 2017Q3

REPORT INFORMATION
  Report Type: Report from Study
  Country: US (occurrence: US)
  Receive Date: 20170726
  Receipt Date: 20170726
  Transmission Date: 20171127
  Serious: Yes (Other)
  Sender: FDA-Public Use
  Company Number: US-AMGEN-USASL2017105179

PATIENT
  Age: 72 Year
  Sex: Male
  Weight: 68.27 kg

DRUGS (6)
  1. REPATHA [Suspect]
     Active Substance: EVOLOCUMAB
     Indication: LIPIDS INCREASED
     Dosage: 140 MG, QMO
     Route: 058
     Dates: start: 20161026
  2. SOTALOL. [Concomitant]
     Active Substance: SOTALOL
     Indication: ATRIAL FIBRILLATION
     Dosage: 120 UNK, BID
  3. PREDNISONE. [Concomitant]
     Active Substance: PREDNISONE
     Indication: INCLUSION BODY MYOSITIS
     Dosage: 10 UNK, QD
  4. ASPIRIN. [Concomitant]
     Active Substance: ASPIRIN
     Indication: CORONARY ARTERY DISEASE
     Dosage: 81 UNK, QD
  5. ELIQUIS [Concomitant]
     Active Substance: APIXABAN
     Indication: ATRIAL FIBRILLATION
     Dosage: 5 UNK, BID
  6. SYMBICORT [Concomitant]
     Active Substance: BUDESONIDE\FORMOTEROL FUMARATE DIHYDRATE
     Indication: CHRONIC OBSTRUCTIVE PULMONARY DISEASE
     Dosage: 2 PUFFS BID

REACTIONS (5)
  - Rhinorrhoea [Unknown]
  - Decreased appetite [Unknown]
  - Asthenia [Unknown]
  - Muscle disorder [Recovering/Resolving]
  - Muscular weakness [Unknown]

NARRATIVE: CASE EVENT DATE: 20170510
